FAERS Safety Report 23599405 (Version 3)
Quarter: 2024Q3

REPORT INFORMATION
  Report Type: Report from Study
  Country: US (occurrence: US)
  Receive Date: 20240306
  Receipt Date: 20240819
  Transmission Date: 20241017
  Serious: Yes (Other)
  Sender: ABBVIE
  Company Number: US-ABBVIE-5664637

PATIENT
  Sex: Male

DRUGS (2)
  1. RINVOQ [Suspect]
     Active Substance: UPADACITINIB
     Indication: Crohn^s disease
     Route: 048
     Dates: start: 20230920
  2. RINVOQ [Suspect]
     Active Substance: UPADACITINIB
     Indication: Crohn^s disease
     Dosage: LAST ADMINISTRATION DATE 2023
     Route: 048
     Dates: start: 20230101

REACTIONS (3)
  - Prostate cancer [Not Recovered/Not Resolved]
  - Weight decreased [Not Recovered/Not Resolved]
  - Malignant melanoma stage III [Recovering/Resolving]
